FAERS Safety Report 6265599-1 (Version None)
Quarter: 2009Q3

REPORT INFORMATION
  Report Type: 
  Country: None (occurrence: None)
  Receive Date: 20090709
  Receipt Date: 20090709
  Transmission Date: 20100115
  Serious: Yes (Life-Threatening)
  Sender: FDA-Public Use
  Company Number: None

PATIENT
  Age: 13 Year
  Sex: Female
  Weight: 68.4 kg

DRUGS (1)
  1. PROPYLTHIOURACIL [Suspect]
     Indication: BASEDOW'S DISEASE
     Dosage: 150 MG TID PO
     Route: 048
     Dates: start: 20090316, end: 20090529

REACTIONS (23)
  - ACTIVATED PARTIAL THROMBOPLASTIN TIME PROLONGED [None]
  - ALANINE AMINOTRANSFERASE INCREASED [None]
  - AMMONIA INCREASED [None]
  - ASPARTATE AMINOTRANSFERASE INCREASED [None]
  - BILIRUBIN CONJUGATED INCREASED [None]
  - BLOOD ALBUMIN DECREASED [None]
  - BLOOD BILIRUBIN INCREASED [None]
  - BLOOD THYROID STIMULATING HORMONE DECREASED [None]
  - DEPRESSED LEVEL OF CONSCIOUSNESS [None]
  - EPSTEIN-BARR VIRUS ANTIBODY POSITIVE [None]
  - FIBRIN D DIMER INCREASED [None]
  - HEADACHE [None]
  - LETHARGY [None]
  - LIVER DISORDER [None]
  - LIVER TRANSPLANT [None]
  - MENTAL STATUS CHANGES [None]
  - OCULAR ICTERUS [None]
  - PROTHROMBIN TIME PROLONGED [None]
  - SPLENOMEGALY [None]
  - THYROXINE DECREASED [None]
  - TRI-IODOTHYRONINE UPTAKE INCREASED [None]
  - ULTRASOUND LIVER ABNORMAL [None]
  - VOMITING [None]
